FAERS Safety Report 13054320 (Version 3)
Quarter: 2018Q1

REPORT INFORMATION
  Report Type: Report from Study
  Country: BR (occurrence: BR)
  Receive Date: 20161222
  Receipt Date: 20180131
  Transmission Date: 20180508
  Serious: Yes (Hospitalization, Other)
  Sender: FDA-Public Use
  Company Number: BR-ALEXION-A201405076

PATIENT
  Age: 24 Year
  Sex: Female

DRUGS (5)
  1. SOLIRIS [Suspect]
     Active Substance: ECULIZUMAB
     Dosage: 3 VIALS
     Route: 065
     Dates: start: 20180112
  2. SOLIRIS [Suspect]
     Active Substance: ECULIZUMAB
     Dosage: 3 VIALS
     Route: 065
     Dates: start: 20180119
  3. SOLIRIS [Suspect]
     Active Substance: ECULIZUMAB
     Dosage: 900 MG, UNK
     Route: 065
  4. SOLIRIS [Suspect]
     Active Substance: ECULIZUMAB
     Dosage: 1200 MG, Q2W
     Route: 065
  5. SOLIRIS [Suspect]
     Active Substance: ECULIZUMAB
     Indication: ATYPICAL HAEMOLYTIC URAEMIC SYNDROME
     Dosage: UNK
     Route: 042
     Dates: start: 20140701

REACTIONS (19)
  - Fatigue [Unknown]
  - Inappropriate schedule of drug administration [Unknown]
  - Scab [Not Recovered/Not Resolved]
  - Diarrhoea [Unknown]
  - Hospitalisation [Unknown]
  - Malaise [Unknown]
  - Nausea [Unknown]
  - Platelet count decreased [Unknown]
  - Blood urea increased [Unknown]
  - Blood creatinine increased [Unknown]
  - Headache [Unknown]
  - Disease recurrence [Unknown]
  - Blood pressure decreased [Unknown]
  - Glomerulonephritis [Unknown]
  - Oedema [Unknown]
  - Urine output decreased [Unknown]
  - Haemorrhage [Unknown]
  - Vomiting [Unknown]
  - Renal disorder [Unknown]

NARRATIVE: CASE EVENT DATE: 20170901
